FAERS Safety Report 12599141 (Version 1)
Quarter: 2016Q3

REPORT INFORMATION
  Report Type: Spontaneous
  Country: US (occurrence: US)
  Receive Date: 20160727
  Receipt Date: 20160727
  Transmission Date: 20161109
  Serious: No
  Sender: FDA-Public Use
  Company Number: US-SA-2016SA045746

PATIENT

DRUGS (1)
  1. AMBIEN CR [Suspect]
     Active Substance: ZOLPIDEM TARTRATE
     Indication: INSOMNIA
     Dosage: START DATE- 8 YEARS AGO?AMBIEN {2.5MG) AT BEDSIDE
     Route: 065

REACTIONS (4)
  - Somnolence [Unknown]
  - Drug ineffective [Unknown]
  - Abnormal dreams [Unknown]
  - Nightmare [Unknown]
